FAERS Safety Report 8961226 (Version 4)
Quarter: 2013Q3

REPORT INFORMATION
  Report Type: Report from Study
  Country: FR (occurrence: FR)
  Receive Date: 20121213
  Receipt Date: 20130918
  Transmission Date: 20140515
  Serious: Yes (Other)
  Sender: FDA-Public Use
  Company Number: FR-MPIJNJ-2012-02424

PATIENT
  Sex: 0

DRUGS (1)
  1. VELCADE [Suspect]
     Indication: WALDENSTROM^S MACROGLOBULINAEMIA
     Dosage: UNK
     Route: 042
     Dates: start: 20100330, end: 20100610

REACTIONS (2)
  - Pain [Recovered/Resolved]
  - Feeling abnormal [Recovered/Resolved]
